FAERS Safety Report 21309635 (Version 1)
Quarter: 2022Q3

REPORT INFORMATION
  Report Type: Spontaneous
  Country: GT (occurrence: GT)
  Receive Date: 20220908
  Receipt Date: 20220908
  Transmission Date: 20221027
  Serious: Yes (Death, Other)
  Sender: FDA-Public Use
  Company Number: GT-ELI_LILLY_AND_COMPANY-GT202209002907

PATIENT
  Sex: Male

DRUGS (1)
  1. HUMULIN 70/30 [Suspect]
     Active Substance: INSULIN HUMAN
     Indication: Diabetes mellitus
     Dosage: 10 U, BID (AM AND PM)
     Route: 058
     Dates: start: 20211102, end: 20211210

REACTIONS (3)
  - Cardiac arrest [Fatal]
  - Blood pressure increased [Unknown]
  - Diabetes mellitus inadequate control [Unknown]
